FAERS Safety Report 9322589 (Version 1)
Quarter: 2013Q2

REPORT INFORMATION
  Report Type: Report from Study
  Country: US (occurrence: US)
  Receive Date: 20130531
  Receipt Date: 20130531
  Transmission Date: 20140414
  Serious: Yes (Other)
  Sender: FDA-Public Use
  Company Number: US-US-EMD SERONO, INC.-7214874

PATIENT
  Age: 39 Year
  Sex: Female

DRUGS (1)
  1. REBIF [Suspect]
     Indication: MULTIPLE SCLEROSIS
     Route: 058
     Dates: start: 2008

REACTIONS (6)
  - Breech presentation [Recovered/Resolved]
  - Placental disorder [Recovered/Resolved]
  - Amniotic fluid volume decreased [Recovered/Resolved]
  - Amniorrhoea [Recovered/Resolved]
  - Live birth [Recovered/Resolved]
  - Maternal exposure timing unspecified [Recovered/Resolved]
